FAERS Safety Report 8043483-0 (Version None)
Quarter: 2011Q4

REPORT INFORMATION
  Report Type: 
  Country: None (occurrence: None)
  Receive Date: 20111209
  Receipt Date: 20111107
  Transmission Date: 20120403
  Serious: No
  Sender: FDA-Public Use
  Company Number: 2011SP052381

PATIENT
  Age: 61 Year
  Sex: Female

DRUGS (6)
  1. REBETOL [Suspect]
     Indication: HEPATITIS C
     Dosage: 400 MG;BID;PO
     Route: 048
     Dates: start: 20110829, end: 20111101
  2. ESTRADERM [Concomitant]
  3. NEXIUM [Concomitant]
  4. VICTRELIS [Suspect]
     Indication: HEPATITIS C
     Dosage: 800 MG;TID;PO
     Route: 048
     Dates: start: 20110829, end: 20111101
  5. PEG-INTRON [Suspect]
     Indication: HEPATITIS C
     Dosage: 80 MCG/M2;QW
     Dates: start: 20110829, end: 20111101
  6. OMEPRAZOLE [Concomitant]

REACTIONS (9)
  - EAR DISCOMFORT [None]
  - THERAPEUTIC PRODUCT INEFFECTIVE [None]
  - INAPPROPRIATE SCHEDULE OF DRUG ADMINISTRATION [None]
  - FATIGUE [None]
  - DYSPNOEA [None]
  - EAR PAIN [None]
  - DEPRESSION [None]
  - ARTHRALGIA [None]
  - MUSCULAR WEAKNESS [None]
